FAERS Safety Report 15387589 (Version 8)
Quarter: 2019Q1

REPORT INFORMATION
  Report Type: Report from Study
  Country: US (occurrence: US)
  Receive Date: 20180914
  Receipt Date: 20190128
  Transmission Date: 20190417
  Serious: Yes (Death, Hospitalization)
  Sender: FDA-Public Use
  Company Number: US-ACTELION-A-US2018-173312

PATIENT
  Age: 2 Year
  Sex: Female
  Weight: 5.9 kg

DRUGS (11)
  1. TRACLEER [Suspect]
     Active Substance: BOSENTAN
     Dosage: 13 MG, BID
     Route: 048
  2. ASPIRIN 81 [Concomitant]
     Active Substance: ASPIRIN
  3. DIURIL [Concomitant]
     Active Substance: CHLOROTHIAZIDE
  4. TRACLEER [Suspect]
     Active Substance: BOSENTAN
     Dosage: 18 MG, BID
     Route: 048
     Dates: start: 20180523
  5. REVATIO [Concomitant]
     Active Substance: SILDENAFIL CITRATE
     Dosage: 8.1 MG, TID
  6. ALDACTONE [Concomitant]
     Active Substance: SPIRONOLACTONE
  7. TRACLEER [Suspect]
     Active Substance: BOSENTAN
     Dosage: 16 MG, BID
     Route: 048
  8. ALBUTEROL. [Concomitant]
     Active Substance: ALBUTEROL
     Dosage: 2.5 MG, NEBULIZED UNK
     Route: 055
  9. TRACLEER [Suspect]
     Active Substance: BOSENTAN
     Indication: PULMONARY ARTERIAL HYPERTENSION
     Dosage: 2MG/KG/DOSE, BID
     Route: 048
  10. TRACLEER [Suspect]
     Active Substance: BOSENTAN
     Dosage: 32 MG, BID
     Route: 048
  11. REVATIO [Concomitant]
     Active Substance: SILDENAFIL CITRATE
     Dosage: 2 MG/KG/DOSE, TID

REACTIONS (7)
  - Tracheitis [Recovered/Resolved]
  - Acute respiratory failure [Recovered/Resolved]
  - Reaction to food additive [Unknown]
  - Oxygen consumption increased [Recovered/Resolved]
  - Death [Fatal]
  - Pneumonia [Unknown]
  - Hospitalisation [Unknown]

NARRATIVE: CASE EVENT DATE: 20180808
